FAERS Safety Report 9984945 (Version 1)
Quarter: 2014Q1

REPORT INFORMATION
  Report Type: Report from Study
  Country: US (occurrence: US)
  Receive Date: 20140307
  Receipt Date: 20140307
  Transmission Date: 20141002
  Serious: No
  Sender: FDA-Public Use
  Company Number: US-ABBVIE-14P-163-1186550-00

PATIENT
  Age: 58 Year
  Sex: Female

DRUGS (7)
  1. HUMIRA [Suspect]
     Indication: CROHN^S DISEASE
     Dates: start: 20131114
  2. METRONIDAZOLE [Concomitant]
     Indication: CROHN^S DISEASE
     Dosage: AS NEEDED
  3. PREDNISONE [Concomitant]
     Indication: CROHN^S DISEASE
  4. AMLODIPINE [Concomitant]
     Indication: BLOOD PRESSURE
  5. DIURETIC [Concomitant]
     Indication: BLOOD PRESSURE
  6. PRILOSEC [Concomitant]
     Indication: GASTRIC DISORDER
     Dosage: AS NEEDED
  7. ROBINUL [Concomitant]
     Indication: CROHN^S DISEASE

REACTIONS (1)
  - Incorrect dose administered [Recovered/Resolved]
